FAERS Safety Report 26125082 (Version 2)
Quarter: 2025Q4

REPORT INFORMATION
  Report Type: Spontaneous
  Country: RU (occurrence: RU)
  Receive Date: 20251205
  Receipt Date: 20251216
  Transmission Date: 20260119
  Serious: Yes (Hospitalization, Other)
  Sender: RANBAXY
  Company Number: RU-SUN PHARMACEUTICAL INDUSTRIES LTD-2025R1-540090

PATIENT
  Age: 19 Year
  Sex: Female
  Weight: 54 kg

DRUGS (8)
  1. METHYLPREDNISOLONE [Suspect]
     Active Substance: METHYLPREDNISOLONE
     Indication: Renal impairment
     Dosage: 4 MILLIGRAM, DAILY
     Route: 065
  2. MYCOPHENOLIC ACID [Suspect]
     Active Substance: MYCOPHENOLIC ACID
     Indication: Renal impairment
     Dosage: 250 MILLIGRAM
     Route: 065
  3. URSODIOL [Suspect]
     Active Substance: URSODIOL
     Indication: Renal impairment
     Dosage: UNK
     Route: 065
  4. PREDNISOLONE [Suspect]
     Active Substance: PREDNISOLONE
     Indication: Renal impairment
     Dosage: UNK
     Route: 065
  5. OMEPRAZOLE [Suspect]
     Active Substance: OMEPRAZOLE
     Indication: Renal impairment
     Dosage: UNK
     Route: 065
  6. PANCREATIN [Suspect]
     Active Substance: PANCRELIPASE
     Indication: Renal impairment
     Dosage: UNK
     Route: 065
  7. METAMIZOLE SODIUM [Suspect]
     Active Substance: METAMIZOLE SODIUM
     Indication: Renal impairment
     Dosage: UNK
     Route: 065
  8. TACROLIMUS [Suspect]
     Active Substance: TACROLIMUS
     Indication: Renal impairment
     Dosage: 6 MILLIGRAM
     Route: 065

REACTIONS (5)
  - Steroid diabetes [Recovering/Resolving]
  - Haemorrhagic fever [Recovering/Resolving]
  - Sepsis [Recovering/Resolving]
  - Pulmonary renal syndrome [Recovering/Resolving]
  - Renal cyst [Recovering/Resolving]
